FAERS Safety Report 7041131-X (Version None)
Quarter: 2010Q4

REPORT INFORMATION
  Report Type: 
  Country: None (occurrence: None)
  Receive Date: 20101013
  Receipt Date: 20101004
  Transmission Date: 20110411
  Serious: Yes (Other)
  Sender: FDA-Public Use
  Company Number: JP-JNJFOC-20100603750

PATIENT
  Sex: Male
  Weight: 51 kg

DRUGS (23)
  1. DUROTEP MT PATCH [Suspect]
     Indication: CANCER PAIN
     Route: 062
  2. DUROTEP MT PATCH [Suspect]
     Route: 062
  3. DUROTEP MT PATCH [Suspect]
     Route: 062
  4. DUROTEP MT PATCH [Suspect]
     Route: 062
  5. WARFARIN POTASSIUM [Interacting]
     Indication: PRODUCT USED FOR UNKNOWN INDICATION
     Route: 048
  6. WARFARIN POTASSIUM [Interacting]
     Route: 048
  7. OLMETEC [Concomitant]
     Route: 048
  8. GASTER D [Concomitant]
     Route: 048
  9. MAGNESIUM OXIDE [Concomitant]
     Route: 048
  10. MUCOSTA [Concomitant]
     Route: 048
  11. MEVALOTIN [Concomitant]
     Route: 048
  12. LASIX [Concomitant]
     Route: 048
  13. HERBESSER R [Concomitant]
     Route: 048
  14. GLUFAST [Concomitant]
     Route: 048
  15. URIEF [Concomitant]
     Route: 048
  16. OPSO [Concomitant]
     Route: 048
  17. OPSO [Concomitant]
     Route: 048
  18. OPSO [Concomitant]
     Route: 048
  19. OPSO [Concomitant]
     Route: 048
  20. OPSO [Concomitant]
     Route: 048
  21. OPSO [Concomitant]
     Route: 048
  22. LOXONIN [Concomitant]
     Route: 048
  23. PURSENNID [Concomitant]
     Route: 048

REACTIONS (3)
  - DRUG EFFECT INCREASED [None]
  - DRUG INTERACTION [None]
  - PROTHROMBIN TIME PROLONGED [None]
